FAERS Safety Report 17120531 (Version 1)
Quarter: 2019Q4

REPORT INFORMATION
  Report Type: Spontaneous
  Country: FR (occurrence: FR)
  Receive Date: 20191206
  Receipt Date: 20191206
  Transmission Date: 20200122
  Serious: Yes (Other)
  Sender: FDA-Public Use
  Company Number: FR-UCBSA-2019051938

PATIENT
  Age: 75 Year
  Sex: Female

DRUGS (6)
  1. XYZALL [Suspect]
     Active Substance: LEVOCETIRIZINE DIHYDROCHLORIDE
     Indication: PREMEDICATION
     Dosage: 1 DOSAGE FORM, ONE TIME DOSE
     Route: 048
     Dates: start: 20190918
  2. AVASTIN [Suspect]
     Active Substance: BEVACIZUMAB
     Indication: BREAST CANCER
     Dosage: 550 MILLIGRAM
     Route: 041
     Dates: start: 20190918
  3. PACLIMEIZ [Suspect]
     Active Substance: PACLITAXEL
     Indication: BREAST CANCER
     Dosage: 96 MG IV
     Route: 041
     Dates: start: 20190918
  4. AZANTAC [Suspect]
     Active Substance: RANITIDINE HYDROCHLORIDE
     Indication: PREMEDICATION
     Dosage: 1 DOSAGE FORM, ONE TIME DOSE
     Route: 048
     Dates: start: 20190918
  5. ZOPHREN [ONDANSETRON HYDROCHLORIDE] [Suspect]
     Active Substance: ONDANSETRON
     Indication: PREMEDICATION
     Dosage: 1 DOSAGE FORM, ONE TIME DOSE
     Route: 048
     Dates: start: 20190918
  6. CORTANCYL [Suspect]
     Active Substance: PREDNISONE
     Indication: PREMEDICATION
     Dosage: 1 DOSAGE FORM, ONE TIME DOSE
     Route: 048
     Dates: start: 20190918

REACTIONS (4)
  - Nausea [Recovered/Resolved]
  - Pyrexia [Recovered/Resolved]
  - Back pain [Recovered/Resolved]
  - Vomiting [Recovered/Resolved]

NARRATIVE: CASE EVENT DATE: 20190918
